FAERS Safety Report 7477031-0 (Version None)
Quarter: 2011Q2

REPORT INFORMATION
  Report Type: 
  Country: None (occurrence: None)
  Receive Date: 20110512
  Receipt Date: 20110509
  Transmission Date: 20111010
  Serious: Yes (Hospitalization)
  Sender: FDA-Public Use
  Company Number: IT-ALLERGAN-1106402US

PATIENT
  Sex: Female

DRUGS (1)
  1. BOTULINUM TOXIN TYPE A [Suspect]
     Indication: SKIN WRINKLING
     Dosage: UNK
     Dates: start: 20060301, end: 20060301

REACTIONS (10)
  - BOTULISM [None]
  - FATIGUE [None]
  - HEADACHE [None]
  - DYSPNOEA [None]
  - DEPRESSION [None]
  - DIPLOPIA [None]
  - DRY EYE [None]
  - DYSPHAGIA [None]
  - VITREOUS DETACHMENT [None]
  - ARTHRALGIA [None]
